FAERS Safety Report 7145290-X (Version None)
Quarter: 2010Q4

REPORT INFORMATION
  Report Type: 
  Country: None (occurrence: None)
  Receive Date: 20101208
  Receipt Date: 20101129
  Transmission Date: 20110411
  Serious: Yes (Hospitalization, Other)
  Sender: FDA-Public Use
  Company Number: JP-NOVOPROD-318289

PATIENT
  Age: 24 Year
  Sex: Female
  Weight: 55 kg

DRUGS (7)
  1. NOVORAPID CHU FLEXPEN [Suspect]
     Indication: TYPE 1 DIABETES MELLITUS
     Dosage: 18 U, QD
     Dates: start: 20100606, end: 20100606
  2. NOVORAPID CHU FLEXPEN [Suspect]
     Dosage: 2400 U, QD
     Route: 058
     Dates: start: 20100606, end: 20100606
  3. NOVORAPID CHU FLEXPEN [Suspect]
     Dosage: 900 U, QD
     Route: 058
     Dates: start: 20100607
  4. NOVORAPID CHU FLEXPEN [Suspect]
     Dosage: 2-2-2 U QD
     Route: 058
  5. LANTUS [Suspect]
     Indication: TYPE 1 DIABETES MELLITUS
     Dosage: 20 U, QD
     Dates: start: 20100606, end: 20100606
  6. LANTUS [Suspect]
     Dosage: 900 U, QD
     Route: 058
     Dates: start: 20100606, end: 20100606
  7. LANTUS [Suspect]
     Dosage: 6-0-0 U QD
     Route: 058

REACTIONS (3)
  - HYPOGLYCAEMIA [None]
  - INTENTIONAL OVERDOSE [None]
  - SUICIDE ATTEMPT [None]
